FAERS Safety Report 13891729 (Version 1)
Quarter: 2017Q3

REPORT INFORMATION
  Report Type: Spontaneous
  Country: BR (occurrence: BR)
  Receive Date: 20170822
  Receipt Date: 20170822
  Transmission Date: 20171127
  Serious: Yes (Hospitalization, Other)
  Sender: FDA-Public Use
  Company Number: BR-PFIZER INC-2017310893

PATIENT
  Sex: Female

DRUGS (6)
  1. PREMARIN [Suspect]
     Active Substance: ESTROGENS, CONJUGATED
     Dosage: 1 TABLET OF 0.625MG/DAY
     Dates: end: 201705
  2. SOMALGIN [Concomitant]
     Active Substance: ASPIRIN\DIHYDROXYALUMINUM AMINOACETATE ANHYDROUS\MAGNESIUM CARBONATE
     Dosage: UNK
  3. HYDROCHLOROTHIAZIDE. [Concomitant]
     Active Substance: HYDROCHLOROTHIAZIDE
     Dosage: UNK
  4. PREMARIN [Suspect]
     Active Substance: ESTROGENS, CONJUGATED
     Indication: HORMONE REPLACEMENT THERAPY
     Dosage: 1 TABLET OF 0.625MG/DAY
     Dates: start: 1982, end: 2011
  5. NYSTATIN. [Concomitant]
     Active Substance: NYSTATIN
     Dosage: UNK
  6. VERAPAMIL [Concomitant]
     Active Substance: VERAPAMIL HYDROCHLORIDE
     Dosage: UNK

REACTIONS (8)
  - Arthralgia [Recovered/Resolved]
  - Depression [Recovering/Resolving]
  - Intentional product misuse [Unknown]
  - Malaise [Recovering/Resolving]
  - Arterial occlusive disease [Recovered/Resolved]
  - Weight decreased [Unknown]
  - Obesity [Unknown]
  - Panic reaction [Recovering/Resolving]

NARRATIVE: CASE EVENT DATE: 2011
